FAERS Safety Report 20560570 (Version 1)
Quarter: 2022Q1

REPORT INFORMATION
  Report Type: Spontaneous
  Country: US (occurrence: US)
  Receive Date: 20220307
  Receipt Date: 20220307
  Transmission Date: 20220423
  Serious: No
  Sender: FDA-Public Use
  Company Number: US-PFIZER INC-2021880504

PATIENT
  Age: 72 Year
  Sex: Male

DRUGS (1)
  1. XELJANZ [Suspect]
     Active Substance: TOFACITINIB CITRATE
     Dosage: 5 MG, DAILY (ONLY TAKING ONE AT NIGHT TIME)
     Dates: start: 202103

REACTIONS (2)
  - Intentional product misuse [Unknown]
  - Headache [Unknown]

NARRATIVE: CASE EVENT DATE: 20210709
